FAERS Safety Report 5156207-1 (Version None)
Quarter: 2006Q4

REPORT INFORMATION
  Report Type: 
  Country: None (occurrence: None)
  Receive Date: 20061122
  Receipt Date: 20061115
  Transmission Date: 20070319
  Serious: Yes (Hospitalization)
  Sender: FDA-Public Use
  Company Number: US-JNJFOC-20061104171

PATIENT
  Sex: Female
  Weight: 113.4 kg

DRUGS (6)
  1. DURAGESIC-100 [Suspect]
     Route: 062
  2. DURAGESIC-100 [Suspect]
     Indication: PAIN
     Route: 062
  3. BACTRIM [Concomitant]
     Indication: KIDNEY INFECTION
     Route: 048
  4. ZIAC [Concomitant]
     Indication: BLOOD PRESSURE
     Route: 048
  5. LEVOTHYROXINE SODIUM [Concomitant]
     Indication: THYROID DISORDER
     Route: 048
  6. PREDNISONE TAB [Concomitant]
     Route: 048

REACTIONS (2)
  - CYSTITIS [None]
  - KIDNEY INFECTION [None]
